FAERS Safety Report 9059237 (Version 58)
Quarter: 2024Q1

REPORT INFORMATION
  Report Type: Other
  Country: CA (occurrence: None)
  Receive Date: 20130211
  Receipt Date: 20240117
  Transmission Date: 20240410
  Serious: Yes (Other)
  Sender: FDA-Public Use
  Company Number: CA-ROCHE-1137492

PATIENT
  Age: 61 Year
  Sex: Female
  Weight: 74 kg

DRUGS (24)
  1. ACTEMRA [Suspect]
     Active Substance: TOCILIZUMAB
     Indication: Rheumatoid arthritis
     Route: 042
     Dates: start: 20110516, end: 20120103
  2. ACTEMRA [Suspect]
     Active Substance: TOCILIZUMAB
     Route: 042
     Dates: start: 20120131, end: 20120717
  3. ACTEMRA [Suspect]
     Active Substance: TOCILIZUMAB
     Route: 042
     Dates: start: 20120814, end: 20130704
  4. ACTEMRA [Suspect]
     Active Substance: TOCILIZUMAB
     Route: 042
     Dates: start: 20130730, end: 20131022
  5. ACTEMRA [Suspect]
     Active Substance: TOCILIZUMAB
     Route: 042
     Dates: start: 20141029, end: 20150319
  6. ACTEMRA [Suspect]
     Active Substance: TOCILIZUMAB
     Route: 042
     Dates: start: 20170508
  7. ACTEMRA [Suspect]
     Active Substance: TOCILIZUMAB
     Route: 042
     Dates: start: 20170605
  8. ACTEMRA [Suspect]
     Active Substance: TOCILIZUMAB
     Route: 042
     Dates: start: 20180618
  9. ACTEMRA [Suspect]
     Active Substance: TOCILIZUMAB
     Dosage: CLINICAL RESEARCH - OUTSIDE RPAP
     Route: 042
     Dates: start: 200604, end: 20110421
  10. ACTEMRA [Suspect]
     Active Substance: TOCILIZUMAB
     Route: 042
     Dates: start: 20131219, end: 20131219
  11. ACTEMRA [Suspect]
     Active Substance: TOCILIZUMAB
     Route: 042
     Dates: start: 20140116, end: 20140925
  12. ACTEMRA [Suspect]
     Active Substance: TOCILIZUMAB
     Route: 042
     Dates: start: 20150416, end: 20150416
  13. ACTEMRA [Suspect]
     Active Substance: TOCILIZUMAB
     Route: 042
     Dates: start: 20150514, end: 20180326
  14. ACTEMRA [Suspect]
     Active Substance: TOCILIZUMAB
     Route: 042
     Dates: start: 20180423, end: 20180716
  15. ACTEMRA [Suspect]
     Active Substance: TOCILIZUMAB
     Route: 042
     Dates: start: 20180813, end: 20190517
  16. ACTEMRA [Suspect]
     Active Substance: TOCILIZUMAB
     Route: 042
     Dates: start: 20190719, end: 20230405
  17. ACTEMRA [Suspect]
     Active Substance: TOCILIZUMAB
     Route: 042
     Dates: start: 20230503
  18. LIPITOR [Suspect]
     Active Substance: ATORVASTATIN CALCIUM
     Indication: Blood cholesterol increased
     Route: 065
  19. MACROBID [Suspect]
     Active Substance: NITROFURANTOIN\NITROFURANTOIN MONOHYDRATE
     Indication: Urinary tract infection
     Route: 065
     Dates: start: 20180129, end: 2018
  20. PRAVASTATIN [Concomitant]
     Active Substance: PRAVASTATIN
     Indication: Blood cholesterol increased
  21. ALENDRONATE [Concomitant]
     Active Substance: ALENDRONATE SODIUM
  22. FOSAMAX [Concomitant]
     Active Substance: ALENDRONATE SODIUM
  23. CALCIUM [Concomitant]
     Active Substance: CALCIUM
  24. PRAVACHOL [Concomitant]
     Active Substance: PRAVASTATIN SODIUM

REACTIONS (26)
  - Mammogram abnormal [Unknown]
  - Blood pressure increased [Not Recovered/Not Resolved]
  - Blood cholesterol increased [Not Recovered/Not Resolved]
  - Hypertension [Unknown]
  - Arthralgia [Recovered/Resolved]
  - Fungal foot infection [Not Recovered/Not Resolved]
  - Urinary tract infection [Unknown]
  - Nasal congestion [Recovering/Resolving]
  - Weight decreased [Recovering/Resolving]
  - Sinusitis [Recovering/Resolving]
  - Weight increased [Unknown]
  - Micturition urgency [Unknown]
  - Blood pressure systolic increased [Unknown]
  - Blood pressure systolic abnormal [Unknown]
  - Heart rate increased [Unknown]
  - Chronic sinusitis [Unknown]
  - Myalgia [Unknown]
  - Urinary tract infection [Recovered/Resolved]
  - Hypersensitivity [Not Recovered/Not Resolved]
  - Nasal congestion [Not Recovered/Not Resolved]
  - Chills [Not Recovered/Not Resolved]
  - Groin infection [Unknown]
  - Nasopharyngitis [Recovering/Resolving]
  - Respiratory rate increased [Unknown]
  - Body temperature decreased [Unknown]
  - Heart rate decreased [Unknown]

NARRATIVE: CASE EVENT DATE: 20120813
